FAERS Safety Report 9298445 (Version 1)
Quarter: 2013Q2

REPORT INFORMATION
  Report Type: Spontaneous
  Country: US (occurrence: US)
  Receive Date: 20130520
  Receipt Date: 20130520
  Transmission Date: 20140414
  Serious: No
  Sender: FDA-Public Use
  Company Number: US-TEVA-402177USA

PATIENT
  Age: 34 Year
  Sex: Female

DRUGS (1)
  1. COPAXONE [Suspect]

REACTIONS (4)
  - Weight decreased [Unknown]
  - Fatigue [Unknown]
  - Alopecia [Unknown]
  - Premenstrual headache [Unknown]
